FAERS Safety Report 9040674 (Version 1)
Quarter: 2013Q1

REPORT INFORMATION
  Report Type: Report from Study
  Country: US (occurrence: US)
  Receive Date: 20130129
  Receipt Date: 20130129
  Transmission Date: 20140127
  Serious: No
  Sender: FDA-Public Use
  Company Number: US-ABBOTT-11P-163-0885726-00

PATIENT
  Sex: Female
  Weight: 108.96 kg

DRUGS (10)
  1. HUMIRA 40 MG/ 0.8 ML PRE-FILLED SYRINGE [Suspect]
     Indication: RHEUMATOID ARTHRITIS
     Dates: start: 20110915, end: 201110
  2. AMLODIPINE [Concomitant]
     Indication: HYPERTENSION
  3. BIOTIN [Concomitant]
     Indication: VITAMIN SUPPLEMENTATION
  4. CALTRATE [Concomitant]
     Indication: VITAMIN SUPPLEMENTATION
  5. FISH OIL [Concomitant]
     Indication: VITAMIN SUPPLEMENTATION
  6. FOLIC ACID [Concomitant]
     Indication: RHEUMATOID ARTHRITIS
  7. METOPROLOL [Concomitant]
     Indication: HYPERTENSION
  8. TRAMADOL [Concomitant]
     Indication: PAIN
  9. PREDNISONE [Concomitant]
     Indication: RHEUMATOID ARTHRITIS
  10. MULTIVITAMIN [Concomitant]
     Indication: VITAMIN SUPPLEMENTATION

REACTIONS (3)
  - Contusion [Recovered/Resolved]
  - Fatigue [Recovered/Resolved]
  - Abdominal discomfort [Recovered/Resolved]
